FAERS Safety Report 9348487 (Version 1)
Quarter: 2013Q2

REPORT INFORMATION
  Report Type: Spontaneous
  Country: ME (occurrence: ME)
  Receive Date: 20130614
  Receipt Date: 20130614
  Transmission Date: 20140414
  Serious: Yes (Death)
  Sender: FDA-Public Use
  Company Number: ME-ROCHE-1236574

PATIENT
  Age: 42 Year
  Sex: Female
  Weight: 62 kg

DRUGS (4)
  1. KADCYLA [Suspect]
     Indication: BREAST CANCER METASTATIC
     Route: 042
     Dates: start: 20130606, end: 20130612
  2. DEXASON [Concomitant]
     Indication: ASCITES
     Route: 065
     Dates: end: 20130612
  3. CONTROLOC [Concomitant]
     Indication: VOMITING
     Route: 065
     Dates: end: 20130612
  4. LASIX [Concomitant]
     Indication: ASCITES
     Route: 065
     Dates: end: 20130612

REACTIONS (1)
  - Disease progression [Fatal]
